FAERS Safety Report 7891146-4 (Version None)
Quarter: 2011Q4

REPORT INFORMATION
  Report Type: 
  Country: None (occurrence: None)
  Receive Date: 20111103
  Receipt Date: 20110729
  Transmission Date: 20120403
  Serious: No
  Sender: FDA-Public Use
  Company Number: US-AMGEN-USASP2011038589

PATIENT
  Age: 22 Year
  Sex: Male

DRUGS (4)
  1. BENADRYL COLD [Concomitant]
     Route: 048
  2. MOBIC [Concomitant]
  3. ENBREL [Suspect]
     Indication: PRODUCT USED FOR UNKNOWN INDICATION
     Dosage: 50 MG, QWK
     Route: 058
  4. ALKA SELTZER                       /00002701/ [Concomitant]

REACTIONS (7)
  - ASTHENIA [None]
  - PNEUMONIA [None]
  - DYSPHONIA [None]
  - THROAT IRRITATION [None]
  - PULMONARY CONGESTION [None]
  - PRODUCTIVE COUGH [None]
  - RHINORRHOEA [None]
